FAERS Safety Report 10443361 (Version 2)
Quarter: 2014Q4

REPORT INFORMATION
  Report Type: Report from Study
  Country: US (occurrence: US)
  Receive Date: 20140910
  Receipt Date: 20141003
  Transmission Date: 20150528
  Serious: Yes (Congenital Anomaly, Other)
  Sender: FDA-Public Use
  Company Number: US-BIOGENIDEC-2014BI092523

PATIENT
  Age: 0 Day

DRUGS (2)
  1. TYSABRI [Suspect]
     Active Substance: NATALIZUMAB
     Indication: MULTIPLE SCLEROSIS
     Route: 042
     Dates: start: 20100322, end: 20131003
  2. AVONEX [Concomitant]
     Active Substance: INTERFERON BETA-1A
     Indication: MULTIPLE SCLEROSIS
     Route: 030

REACTIONS (3)
  - Congenital renal disorder [Unknown]
  - Trisomy 21 [Not Recovered/Not Resolved]
  - Premature baby [Unknown]

NARRATIVE: CASE EVENT DATE: 20140301
